FAERS Safety Report 10244966 (Version 1)
Quarter: 2014Q2

REPORT INFORMATION
  Report Type: Spontaneous
  Country: US (occurrence: None)
  Receive Date: 20140616
  Receipt Date: 20140616
  Transmission Date: 20141212
  Serious: Yes (Life-Threatening, Hospitalization)
  Sender: FDA-Public Use
  Company Number: None

PATIENT
  Age: 74 Year
  Sex: Female
  Weight: 79.38 kg

DRUGS (11)
  1. ELIQUIS [Suspect]
     Indication: ANTICOAGULANT THERAPY
     Dosage: 5 MG /DA?1 PILL?ONCE PER DAY?BY MOUTH??THERAPY?FALL 2013 TO FEB 10 2014
     Route: 048
     Dates: start: 2013, end: 20140210
  2. ELIQUIS [Suspect]
     Indication: ATRIAL FIBRILLATION
     Dosage: 5 MG /DA?1 PILL?ONCE PER DAY?BY MOUTH??THERAPY?FALL 2013 TO FEB 10 2014
     Route: 048
     Dates: start: 2013, end: 20140210
  3. LEVOTHYROCIN [Concomitant]
  4. TEMAZEPAM [Concomitant]
  5. CARDIZEM [Concomitant]
  6. MG [Concomitant]
  7. COQ10 [Concomitant]
  8. B12 [Concomitant]
  9. B5 [Concomitant]
  10. VIT D [Concomitant]
  11. OCCASIONAL CHINESE MEDICINE [Concomitant]

REACTIONS (1)
  - Hospitalisation [None]
